FAERS Safety Report 17489214 (Version 1)
Quarter: 2020Q1

REPORT INFORMATION
  Report Type: Spontaneous
  Country: US (occurrence: US)
  Receive Date: 20200221
  Receipt Date: 20200221
  Transmission Date: 20200409
  Serious: Yes (Hospitalization)
  Sender: FDA-Public Use
  Company Number: None

PATIENT
  Age: 43 Year
  Sex: Female

DRUGS (10)
  1. BENZONATATE. [Concomitant]
     Active Substance: BENZONATATE
  2. HYDROXYCHLOR [Concomitant]
     Active Substance: HYDROXYCHLOROQUINE
  3. ESOMEPRA MAG [Concomitant]
  4. OSELTAMVIR [Concomitant]
     Active Substance: OSELTAMIVIR
  5. TERCONAZOLE. [Concomitant]
     Active Substance: TERCONAZOLE
  6. ONDANSETRON [Concomitant]
     Active Substance: ONDANSETRON
  7. MONTELUKAST [Concomitant]
     Active Substance: MONTELUKAST SODIUM
  8. BENLYSTA [Suspect]
     Active Substance: BELIMUMAB
     Indication: SYSTEMIC LUPUS ERYTHEMATOSUS
     Dosage: ?          OTHER DOSE:1 PEN;?
     Route: 058
     Dates: start: 20181024
  9. CIPROFLOXACIN. [Concomitant]
     Active Substance: CIPROFLOXACIN
  10. METRONIDAZOL [Concomitant]
     Active Substance: METRONIDAZOLE

REACTIONS (6)
  - Loss of consciousness [None]
  - Diverticulitis [None]
  - Pyrexia [None]
  - Seizure [None]
  - Gastrointestinal infection [None]
  - Blood pressure decreased [None]

NARRATIVE: CASE EVENT DATE: 20200131
